FAERS Safety Report 7313498-6 (Version None)
Quarter: 2011Q1

REPORT INFORMATION
  Report Type: 
  Country: None (occurrence: None)
  Receive Date: 20110225
  Receipt Date: 20110217
  Transmission Date: 20110831
  Serious: Yes (Hospitalization)
  Sender: FDA-Public Use
  Company Number: US-PFIZER INC-2011036291

PATIENT
  Sex: Male

DRUGS (14)
  1. SEROQUEL [Concomitant]
     Indication: DEPRESSION
     Dosage: 150 MG, 1X/DAY
     Route: 048
     Dates: start: 20110101
  2. EFFEXOR XR [Suspect]
     Indication: DEPRESSION
     Dosage: 225 MG, 1X/DAY
     Route: 048
     Dates: start: 20110101, end: 20110201
  3. EFFEXOR [Suspect]
     Indication: ANXIETY DISORDER
  4. EFFEXOR [Suspect]
     Indication: DEPRESSION
     Dosage: 225MG AND 3 ADDITIONAL 75MG TABLETS DAILY
     Route: 048
     Dates: start: 20110201
  5. ABILIFY [Suspect]
     Indication: ANXIETY DISORDER
  6. CLONAZEPAM [Suspect]
     Indication: DEPRESSION
     Dosage: UNK
     Dates: end: 20110101
  7. WELLBUTRIN [Suspect]
     Indication: DEPRESSION
     Dosage: UNK
     Dates: end: 20110101
  8. WELLBUTRIN [Suspect]
     Indication: ANXIETY DISORDER
  9. PROZAC [Suspect]
     Indication: DEPRESSION
     Dosage: UNK
     Dates: end: 20110101
  10. SEROQUEL [Concomitant]
     Indication: ANXIETY
  11. CLONAZEPAM [Suspect]
     Indication: ANXIETY DISORDER
  12. PROZAC [Suspect]
     Indication: ANXIETY DISORDER
  13. ABILIFY [Suspect]
     Indication: DEPRESSION
     Dosage: UNK
     Dates: end: 20110101
  14. EFFEXOR XR [Suspect]
     Indication: ANXIETY DISORDER

REACTIONS (3)
  - DRUG INEFFECTIVE [None]
  - MEDICATION ERROR [None]
  - DEPRESSION [None]
